FAERS Safety Report 8867661 (Version 1)
Quarter: 2012Q4

REPORT INFORMATION
  Report Type: 
  Country: US (occurrence: US)
  Receive Date: 20121025
  Receipt Date: 20121025
  Transmission Date: 20130627
  Serious: No
  Sender: FDA-Public Use
  Company Number: US-AMGEN-USASP2012017887

PATIENT
  Sex: Female
  Weight: 58.96 kg

DRUGS (6)
  1. ENBREL [Suspect]
     Indication: PRODUCT USED FOR UNKNOWN INDICATION
     Dosage: 50 mg, qwk
     Route: 058
  2. LIPITOR [Concomitant]
     Dosage: 10 mg, UNK
  3. PRILOSEC                           /00661201/ [Concomitant]
     Dosage: 10 mg, UNK
  4. METHOTREXATE [Concomitant]
     Dosage: 2.5 mg, UNK
  5. VITAMIN D3 [Concomitant]
     Dosage: 1000 IU, UNK
  6. FOLIC ACID [Concomitant]

REACTIONS (1)
  - Stomatitis [Unknown]
